FAERS Safety Report 4716876-4 (Version None)
Quarter: 2005Q3

REPORT INFORMATION
  Report Type: 
  Country: None (occurrence: None)
  Receive Date: 20050714
  Receipt Date: 20050701
  Transmission Date: 20060218
  Serious: Yes (Hospitalization, Other)
  Sender: FDA-Public Use
  Company Number: 2005-0008241

PATIENT
  Age: 35 Year
  Sex: Female
  Weight: 75 kg

DRUGS (4)
  1. VIREAD [Suspect]
     Dosage: 300 MG, 1 IN 1 D
     Dates: start: 20050303, end: 20050304
  2. EFAVIRENZ [Concomitant]
  3. RITONAVIR (RITONAVIR) [Concomitant]
  4. REYATAZ [Concomitant]

REACTIONS (6)
  - EYELID OEDEMA [None]
  - HYPERSENSITIVITY [None]
  - MENSTRUAL DISORDER [None]
  - PAROSMIA [None]
  - RASH VESICULAR [None]
  - SKIN DISCOLOURATION [None]
